FAERS Safety Report 9807135 (Version 2)
Quarter: 2014Q2

REPORT INFORMATION
  Report Type: Spontaneous
  Country: US (occurrence: US)
  Receive Date: 20140110
  Receipt Date: 20140401
  Transmission Date: 20141212
  Serious: Yes (Hospitalization, Other)
  Sender: FDA-Public Use
  Company Number: US-ROCHE-1331636

PATIENT
  Age: 51 Year
  Sex: Male

DRUGS (2)
  1. PEGASYS [Suspect]
     Indication: CHRONIC HEPATITIS C
     Route: 058
     Dates: start: 20121226, end: 20130617
  2. COPEGUS [Suspect]
     Indication: CHRONIC HEPATITIS C
     Dosage: 400/400 MG IN DIVIDED DOSES.
     Route: 065
     Dates: start: 20121226, end: 20130617

REACTIONS (21)
  - Pyrexia [Unknown]
  - Pneumonia [Unknown]
  - Renal failure [Unknown]
  - Lipoma [Unknown]
  - Gastrointestinal haemorrhage [Unknown]
  - Nausea [Unknown]
  - Diarrhoea [Unknown]
  - Skin ulcer [Unknown]
  - Weight increased [Unknown]
  - Alopecia [Unknown]
  - Malaise [Unknown]
  - Pain [Unknown]
  - Headache [Unknown]
  - Sneezing [Unknown]
  - Hyperhidrosis [Unknown]
  - Anxiety [Unknown]
  - Panic attack [Unknown]
  - Depression [Unknown]
  - Feeling abnormal [Unknown]
  - Constipation [Unknown]
  - Hypoaesthesia [Unknown]
